FAERS Safety Report 11795991 (Version 6)
Quarter: 2016Q1

REPORT INFORMATION
  Report Type: Report from Study
  Country: GB (occurrence: GB)
  Receive Date: 20151203
  Receipt Date: 20160224
  Transmission Date: 20160525
  Serious: Yes (Hospitalization, Other)
  Sender: FDA-Public Use
  Company Number: GB-ROCHE-1568240

PATIENT
  Age: 77 Year
  Sex: Female
  Weight: 60.4 kg

DRUGS (11)
  1. FORTISIP [Concomitant]
     Active Substance: CARBOHYDRATES\FATTY ACIDS\MINERALS\PROTEIN\VITAMINS
     Route: 065
     Dates: start: 20151022
  2. ADCAL - D3 [Concomitant]
     Route: 065
     Dates: start: 20111202
  3. ASPIRIN. [Concomitant]
     Active Substance: ASPIRIN
  4. PRAVASTATIN [Concomitant]
     Active Substance: PRAVASTATIN\PRAVASTATIN SODIUM
     Route: 065
     Dates: start: 20121211
  5. RANIBIZUMAB [Suspect]
     Active Substance: RANIBIZUMAB
     Indication: NEOVASCULAR AGE-RELATED MACULAR DEGENERATION
     Route: 050
     Dates: start: 20131025
  6. RANIBIZUMAB [Suspect]
     Active Substance: RANIBIZUMAB
     Route: 050
     Dates: start: 20131220
  7. RANIBIZUMAB [Suspect]
     Active Substance: RANIBIZUMAB
     Dosage: LAST DOSE OF RANIBIZUMAB INJECTION BEFORE THE ADVERSE EVENT
     Route: 050
     Dates: start: 20140808
  8. TRAMADOL. [Concomitant]
     Active Substance: TRAMADOL
  9. OMEPRAZOLE. [Concomitant]
     Active Substance: OMEPRAZOLE
     Route: 065
     Dates: start: 20091210
  10. PARACETAMOL [Concomitant]
     Active Substance: ACETAMINOPHEN
     Route: 065
     Dates: start: 20151002, end: 20151112
  11. FLUDROCORTISONE [Concomitant]
     Active Substance: FLUDROCORTISONE
     Route: 065
     Dates: start: 20150416

REACTIONS (18)
  - Wound infection [Recovered/Resolved with Sequelae]
  - Pulmonary contusion [Unknown]
  - Dehydration [Recovered/Resolved]
  - Decubitus ulcer [Recovering/Resolving]
  - Fall [Unknown]
  - Splenic haematoma [Recovered/Resolved with Sequelae]
  - Urosepsis [Recovered/Resolved with Sequelae]
  - Dizziness [Recovered/Resolved]
  - Fatigue [Unknown]
  - Escherichia urinary tract infection [Recovered/Resolved]
  - Splenic rupture [Recovered/Resolved with Sequelae]
  - Flail chest [Unknown]
  - Urinary tract infection [Unknown]
  - Urinary tract infection [Recovering/Resolving]
  - Femoral neck fracture [Recovered/Resolved with Sequelae]
  - Rib fracture [Recovered/Resolved with Sequelae]
  - Thyroglossal cyst infection [Recovered/Resolved]
  - Blood potassium decreased [Unknown]

NARRATIVE: CASE EVENT DATE: 20140301
